FAERS Safety Report 7260752-2 (Version None)
Quarter: 2011Q1

REPORT INFORMATION
  Report Type: 
  Country: None (occurrence: None)
  Receive Date: 20110130
  Receipt Date: 20101222
  Transmission Date: 20110831
  Serious: No
  Sender: FDA-Public Use
  Company Number: US-ABBOTT-10P-163-0693434-00

PATIENT
  Sex: Female

DRUGS (4)
  1. HUMIRA [Suspect]
     Indication: GASTROINTESTINAL DISORDER
     Dosage: LOADING DOSE
     Dates: start: 20101209
  2. PREDNISONE [Concomitant]
     Indication: INFLAMMATORY BOWEL DISEASE
  3. PRILOSEC [Concomitant]
     Indication: INFLAMMATORY BOWEL DISEASE
  4. IRON [Concomitant]
     Indication: ANAEMIA
     Dosage: 1 TAB DAILY

REACTIONS (1)
  - INJECTION SITE PAIN [None]
